FAERS Safety Report 13335501 (Version 2)
Quarter: 2017Q2

REPORT INFORMATION
  Report Type: Report from Study
  Country: JP (occurrence: JP)
  Receive Date: 20170314
  Receipt Date: 20170406
  Transmission Date: 20170830
  Serious: Yes (Death)
  Sender: FDA-Public Use
  Company Number: JP-UCBSA-2017009520

PATIENT
  Age: 84 Year
  Sex: Female

DRUGS (4)
  1. MIDAZOLAM [Concomitant]
     Active Substance: MIDAZOLAM HYDROCHLORIDE
     Indication: PRODUCT USED FOR UNKNOWN INDICATION
     Dosage: 40 MG, ONCE DAILY (QD)
     Route: 042
     Dates: start: 20161031, end: 20161104
  2. HORIZON [Concomitant]
     Active Substance: DIAZEPAM
     Indication: GENERALISED TONIC-CLONIC SEIZURE
     Route: 042
     Dates: start: 20161031, end: 20161031
  3. NICARDIPINE HYDROCHLORIDE. [Concomitant]
     Active Substance: NICARDIPINE HYDROCHLORIDE
     Indication: PRODUCT USED FOR UNKNOWN INDICATION
     Route: 042
     Dates: start: 20161030, end: 20161104
  4. LEVETIRACETAM. [Suspect]
     Active Substance: LEVETIRACETAM
     Indication: GENERALISED TONIC-CLONIC SEIZURE
     Dosage: 500 MG, 2X/DAY (BID)
     Route: 041
     Dates: start: 20161031, end: 20161103

REACTIONS (2)
  - Cardio-respiratory arrest [Fatal]
  - Ruptured cerebral aneurysm [Fatal]

NARRATIVE: CASE EVENT DATE: 20161104
